FAERS Safety Report 9387345 (Version 1)
Quarter: 2013Q3

REPORT INFORMATION
  Report Type: Spontaneous
  Country: US (occurrence: None)
  Receive Date: 20130703
  Receipt Date: 20130703
  Transmission Date: 20140515
  Serious: Yes (Other)
  Sender: FDA-Public Use
  Company Number: None

PATIENT
  Age: 61 Year
  Sex: Female
  Weight: 71.22 kg

DRUGS (1)
  1. TAMIFLU [Suspect]
     Indication: INFLUENZA
     Dates: start: 20130308, end: 20130311

REACTIONS (11)
  - Tremor [None]
  - Nightmare [None]
  - Hallucination [None]
  - Vomiting [None]
  - Chills [None]
  - Chest discomfort [None]
  - Dyspnoea [None]
  - Constipation [None]
  - Abdominal pain upper [None]
  - Nausea [None]
  - Decreased appetite [None]
